FAERS Safety Report 7634508-2 (Version None)
Quarter: 2011Q3

REPORT INFORMATION
  Report Type: 
  Country: None (occurrence: None)
  Receive Date: 20110725
  Receipt Date: 20110715
  Transmission Date: 20111222
  Serious: Yes (Hospitalization, Disabling)
  Sender: FDA-Public Use
  Company Number: BR-ASTRAZENECA-2011SE42949

PATIENT
  Sex: Female
  Weight: 51 kg

DRUGS (3)
  1. CALTRATE 600 +D [Concomitant]
     Indication: BONE DISORDER
     Dosage: TWO TIMES A DAY
     Route: 048
     Dates: start: 20010101
  2. OMEPRAZOLE [Suspect]
     Indication: GASTRITIS
     Route: 048
  3. LISINOPRIL [Suspect]
     Indication: HYPERTENSION
     Route: 048
     Dates: start: 20010101

REACTIONS (14)
  - ARTHROPATHY [None]
  - BLOOD CHOLESTEROL INCREASED [None]
  - CONTUSION [None]
  - DRUG INEFFECTIVE [None]
  - GASTRITIS [None]
  - DYSGEUSIA [None]
  - LIVER DISORDER [None]
  - WEIGHT DECREASED [None]
  - FALL [None]
  - KNEE ARTHROPLASTY [None]
  - BALANCE DISORDER [None]
  - HEADACHE [None]
  - BLADDER DISORDER [None]
  - OSTEOPOROSIS [None]
